FAERS Safety Report 7156605-0 (Version None)
Quarter: 2010Q4

REPORT INFORMATION
  Report Type: 
  Country: None (occurrence: None)
  Receive Date: 20101214
  Receipt Date: 20100720
  Transmission Date: 20110411
  Serious: No
  Sender: FDA-Public Use
  Company Number: US-ASTRAZENECA-2009SE23505

PATIENT
  Sex: Female
  Weight: 90.7 kg

DRUGS (7)
  1. CRESTOR [Suspect]
     Route: 048
     Dates: start: 20091026
  2. CRESTOR [Suspect]
     Route: 048
     Dates: start: 20100520, end: 20100620
  3. EVISTA [Concomitant]
  4. NORVASC [Concomitant]
  5. CALCIUM PLUS VITAMIN D [Concomitant]
  6. ARMOUR THYROID [Concomitant]
  7. FLAX SEED [Concomitant]

REACTIONS (4)
  - ARTHRALGIA [None]
  - BACK PAIN [None]
  - BLADDER PAIN [None]
  - DRY MOUTH [None]
